FAERS Safety Report 19257416 (Version 1)
Quarter: 2021Q2

REPORT INFORMATION
  Report Type: Spontaneous
  Country: US (occurrence: US)
  Receive Date: 20210513
  Receipt Date: 20210513
  Transmission Date: 20210717
  Serious: No
  Sender: FDA-Public Use
  Company Number: US-SA-2021SA152769

PATIENT
  Sex: Female

DRUGS (1)
  1. DUPIXENT [Suspect]
     Active Substance: DUPILUMAB
     Indication: DERMATITIS ATOPIC
     Dosage: 300 MG, QOW
     Route: 058

REACTIONS (7)
  - Skin haemorrhage [Unknown]
  - Pruritus [Unknown]
  - Discomfort [Unknown]
  - Skin fissures [Unknown]
  - Discharge [Unknown]
  - Dermatitis atopic [Unknown]
  - Sleep disorder [Unknown]
